FAERS Safety Report 7428090-2 (Version None)
Quarter: 2011Q2

REPORT INFORMATION
  Report Type: 
  Country: None (occurrence: None)
  Receive Date: 20110421
  Receipt Date: 20110411
  Transmission Date: 20111010
  Serious: No
  Sender: FDA-Public Use
  Company Number: US-BIOGENIDEC-2010BI040551

PATIENT
  Sex: Female

DRUGS (1)
  1. TYSABRI [Suspect]
     Indication: MULTIPLE SCLEROSIS
     Route: 042
     Dates: start: 20100820

REACTIONS (9)
  - BALANCE DISORDER [None]
  - HYPERSOMNIA [None]
  - FATIGUE [None]
  - HYPOAESTHESIA ORAL [None]
  - JOINT SPRAIN [None]
  - HYPOAESTHESIA [None]
  - FALL [None]
  - JOINT INJURY [None]
  - BACK INJURY [None]
